FAERS Safety Report 11375583 (Version 1)
Quarter: 2015Q3

REPORT INFORMATION
  Report Type: Spontaneous
  Country: US (occurrence: US)
  Receive Date: 20150813
  Receipt Date: 20150813
  Transmission Date: 20151125
  Serious: Yes (Death)
  Sender: FDA-Public Use
  Company Number: US-AMEDRA PHARMACEUTICALS LLC-2015AMD00160

PATIENT
  Age: 58 Year
  Sex: Female
  Weight: 89.8 kg

DRUGS (7)
  1. LEVAQUIN [Concomitant]
     Active Substance: LEVOFLOXACIN
     Dosage: 500 MG, 1X/DAY
  2. ROCEPHIN [Suspect]
     Active Substance: CEFTRIAXONE SODIUM
     Indication: SINUSITIS
     Dosage: 2000 MG, ONCE
     Route: 030
     Dates: start: 20150602, end: 20150602
  3. SINGULAIR [Concomitant]
     Active Substance: MONTELUKAST SODIUM
     Dosage: 10 MG, 1X/DAY
  4. EPINEPHRINE. [Suspect]
     Active Substance: EPINEPHRINE
     Indication: HYPERSENSITIVITY
     Dosage: 0.30 MG, ONCE
     Route: 051
     Dates: start: 20150602, end: 20150602
  5. EPINEPHRINE. [Suspect]
     Active Substance: EPINEPHRINE
     Indication: HYPERSENSITIVITY
     Dosage: 0.30 MG, ONCE
     Route: 051
     Dates: start: 20150602, end: 20150602
  6. FLOMAX [Concomitant]
     Active Substance: TAMSULOSIN HYDROCHLORIDE
     Dosage: 2 DOSAGE UNITS, 1X/DAY
  7. DIFLUCAN [Concomitant]
     Active Substance: FLUCONAZOLE
     Dosage: 1 TABLETS, 1X/DAY

REACTIONS (2)
  - Cardiac arrest [Fatal]
  - Drug ineffective [Fatal]

NARRATIVE: CASE EVENT DATE: 20150602
